FAERS Safety Report 4823666-0 (Version None)
Quarter: 2005Q4

REPORT INFORMATION
  Report Type: 
  Country: None (occurrence: None)
  Receive Date: 20051109
  Receipt Date: 20051027
  Transmission Date: 20060501
  Serious: Yes (Hospitalization)
  Sender: FDA-Public Use
  Company Number: CH-GLAXOSMITHKLINE-B0399839A

PATIENT
  Age: 63 Year
  Sex: Female

DRUGS (7)
  1. AUGMENTIN '125' [Suspect]
     Indication: BRONCHOPULMONARY DISEASE
     Route: 048
     Dates: start: 20050501, end: 20050501
  2. BELOC-ZOK [Concomitant]
     Dosage: 200MG PER DAY
     Route: 048
  3. ASPEGIC 325 [Concomitant]
     Dosage: 1U PER DAY
     Route: 048
  4. SORTIS [Concomitant]
     Dosage: 20MG PER DAY
     Route: 048
  5. ELTROXIN [Concomitant]
     Dosage: .05MG PER DAY
     Route: 048
  6. LEXOTANIL [Concomitant]
     Dosage: 1.5MG PER DAY
     Route: 048
  7. ROHYPNOL [Concomitant]
     Dosage: 2MG PER DAY
     Route: 048

REACTIONS (5)
  - ABDOMINAL PAIN [None]
  - CLOSTRIDIUM COLITIS [None]
  - DIARRHOEA [None]
  - HYPOKALAEMIA [None]
  - INFLAMMATION [None]
